FAERS Safety Report 5197612-7 (Version None)
Quarter: 2006Q4

REPORT INFORMATION
  Report Type: 
  Country: None (occurrence: None)
  Receive Date: 20061228
  Receipt Date: 20061218
  Transmission Date: 20070319
  Serious: Yes (Other)
  Sender: FDA-Public Use
  Company Number: 2006SP006407

PATIENT
  Age: 46 Year
  Sex: Female
  Weight: 78.0187 kg

DRUGS (4)
  1. PEG-INTRON [Suspect]
     Indication: HEPATITIS C
     Dates: start: 20060910, end: 20061101
  2. PEG-INTRON [Suspect]
     Indication: HEPATITIS C
     Dates: start: 20061101
  3. REBETOL [Suspect]
     Indication: HEPATITIS C
     Dosage: PO
     Route: 048
     Dates: start: 20060910
  4. VITAMIN CAP [Concomitant]

REACTIONS (10)
  - BRONCHITIS [None]
  - DRUG INEFFECTIVE [None]
  - DYSPEPSIA [None]
  - FIBRIN D DIMER INCREASED [None]
  - HAEMOPTYSIS [None]
  - LUNG DISORDER [None]
  - LUNG NEOPLASM [None]
  - NEUTROPENIA [None]
  - WEIGHT DECREASED [None]
  - WHITE BLOOD CELL COUNT DECREASED [None]
